FAERS Safety Report 12230540 (Version 3)
Quarter: 2019Q1

REPORT INFORMATION
  Report Type: Spontaneous
  Country: US (occurrence: US)
  Receive Date: 20160401
  Receipt Date: 20190109
  Transmission Date: 20190417
  Serious: Yes (Death, Hospitalization)
  Sender: FDA-Public Use
  Company Number: US-JNJFOC-20160220915

PATIENT
  Age: 74 Year
  Sex: Female

DRUGS (4)
  1. XARELTO [Suspect]
     Active Substance: RIVAROXABAN
     Indication: THROMBOSIS PROPHYLAXIS
     Dosage: 15 MG INCREASED TO 20 MG
     Route: 048
     Dates: start: 20140204, end: 20140228
  2. XARELTO [Suspect]
     Active Substance: RIVAROXABAN
     Indication: PULMONARY EMBOLISM
     Dosage: 15 MG INCREASED TO 20 MG
     Route: 048
     Dates: start: 20140204, end: 20140228
  3. LOVENOX [Suspect]
     Active Substance: ENOXAPARIN SODIUM
     Indication: BIOPSY
     Route: 065
     Dates: start: 20140226, end: 20140228
  4. ASPIRIN. [Suspect]
     Active Substance: ASPIRIN
     Indication: PRODUCT USED FOR UNKNOWN INDICATION
     Route: 065
     Dates: end: 20140228

REACTIONS (2)
  - Cerebral haemorrhage [Fatal]
  - Acute respiratory failure [Fatal]

NARRATIVE: CASE EVENT DATE: 20140228
